FAERS Safety Report 11773800 (Version 1)
Quarter: 2015Q4

REPORT INFORMATION
  Report Type: Spontaneous
  Country: US (occurrence: US)
  Receive Date: 20151124
  Receipt Date: 20151124
  Transmission Date: 20160304
  Serious: No
  Sender: FDA-Public Use
  Company Number: US-BAYER-2015-473859

PATIENT
  Age: 13 Month
  Sex: Female
  Weight: 10.43 kg

DRUGS (1)
  1. ALEVE [Suspect]
     Active Substance: NAPROXEN SODIUM
     Dosage: 1-2 TABLETS, ONCE
     Route: 048

REACTIONS (2)
  - Accidental exposure to product by child [None]
  - Failure of child resistant mechanism for pharmaceutical product [None]
